FAERS Safety Report 10414050 (Version 2)
Quarter: 2014Q3

REPORT INFORMATION
  Report Type: Spontaneous
  Country: US (occurrence: None)
  Receive Date: 20140826
  Receipt Date: 20140926
  Transmission Date: 20150326
  Serious: Yes (Death)
  Sender: FDA-Public Use
  Company Number: US-H14001-14-00432

PATIENT
  Age: 36 Year
  Sex: Male

DRUGS (4)
  1. WARFARIN (WARFARIN) [Concomitant]
     Active Substance: WARFARIN
  2. VITAMINE K (MENADIONE) [Concomitant]
  3. ARGATROBAN. [Suspect]
     Active Substance: ARGATROBAN
     Indication: HEPARIN-INDUCED THROMBOCYTOPENIA
     Dosage: FROM 0.1 TO 1MCG/KG/MINUTE
     Route: 041
  4. HEPARIN [Suspect]
     Active Substance: HEPARIN SODIUM
     Indication: DEEP VEIN THROMBOSIS

REACTIONS (25)
  - Pulseless electrical activity [None]
  - Coagulation time prolonged [None]
  - Haemodilution [None]
  - Therapy cessation [None]
  - Right ventricular failure [None]
  - Renal failure acute [None]
  - Bacteraemia [None]
  - Pulmonary embolism [None]
  - Disease recurrence [None]
  - Activated partial thromboplastin time prolonged [None]
  - Heparin-induced thrombocytopenia [None]
  - Liver disorder [None]
  - Cardiac failure congestive [None]
  - Atrial thrombosis [None]
  - Subclavian vein thrombosis [None]
  - Cardiogenic shock [None]
  - Ischaemic hepatitis [None]
  - Hypoxic-ischaemic encephalopathy [None]
  - Disseminated intravascular coagulation [None]
  - Axillary vein thrombosis [None]
  - Hypovolaemia [None]
  - Multi-organ failure [None]
  - Hypothermia [None]
  - Vena cava thrombosis [None]
  - Cardiac failure acute [None]
